FAERS Safety Report 4368274-3 (Version None)
Quarter: 2004Q2

REPORT INFORMATION
  Report Type: 
  Country: None (occurrence: None)
  Receive Date: 20040527
  Receipt Date: 20040514
  Transmission Date: 20050107
  Serious: Yes (Death, Hospitalization)
  Sender: FDA-Public Use
  Company Number: 02100-JPN-04-0134

PATIENT
  Age: 65 Year
  Sex: Female

DRUGS (2)
  1. CILOSTAZOL [Suspect]
     Indication: LACUNAR INFARCTION
     Dosage: 200 MG ORAL
     Route: 048
     Dates: start: 20040120
  2. DIASTASE COMBINED DRUG 1 [Concomitant]

REACTIONS (7)
  - ANOREXIA [None]
  - ANURIA [None]
  - CONSTIPATION [None]
  - HEARING IMPAIRED [None]
  - HEMIPLEGIA [None]
  - RENAL FAILURE ACUTE [None]
  - SPEECH DISORDER [None]
